FAERS Safety Report 14015637 (Version 1)
Quarter: 2017Q3

REPORT INFORMATION
  Report Type: Spontaneous
  Country: US (occurrence: US)
  Receive Date: 20170927
  Receipt Date: 20170927
  Transmission Date: 20171128
  Serious: Yes (Other)
  Sender: FDA-Public Use
  Company Number: PHEH2017US030807

PATIENT
  Sex: Male

DRUGS (3)
  1. AMIODARON [Suspect]
     Active Substance: AMIODARONE
     Indication: PRODUCT USED FOR UNKNOWN INDICATION
     Route: 065
  2. AMIODARONE HYDROCHLORIDE. [Suspect]
     Active Substance: AMIODARONE HYDROCHLORIDE
     Indication: PRODUCT USED FOR UNKNOWN INDICATION
     Dosage: 200 MG TO 400 MG, QD
     Route: 048
     Dates: start: 20150926, end: 20160404
  3. AMIODARONE TEVA [Suspect]
     Active Substance: AMIODARONE
     Indication: PRODUCT USED FOR UNKNOWN INDICATION
     Route: 065

REACTIONS (9)
  - Muscular weakness [Unknown]
  - Pulmonary toxicity [Unknown]
  - Parkinson^s disease [Unknown]
  - Anxiety [Unknown]
  - Visual impairment [Unknown]
  - Injury [Unknown]
  - Pain [Unknown]
  - Vocal cord disorder [Unknown]
  - Emotional distress [Unknown]
